FAERS Safety Report 6583873-6 (Version None)
Quarter: 2010Q1

REPORT INFORMATION
  Report Type: 
  Country: None (occurrence: None)
  Receive Date: 20100216
  Receipt Date: 20100122
  Transmission Date: 20100710
  Serious: No
  Sender: FDA-Public Use
  Company Number: US-ABBOTT-09P-163-0611316-00

PATIENT
  Sex: Male
  Weight: 136.2 kg

DRUGS (12)
  1. SIMCOR [Suspect]
     Indication: BLOOD CHOLESTEROL INCREASED
     Dosage: 1000MG
     Dates: start: 20090923, end: 20091123
  2. SIMCOR [Suspect]
     Indication: HIGH DENSITY LIPOPROTEIN DECREASED
  3. SIMCOR [Suspect]
     Indication: HIGH DENSITY LIPOPROTEIN INCREASED
  4. LEXAPRO [Suspect]
     Indication: DRUG USE FOR UNKNOWN INDICATION
  5. PIOGLITAZONE [Concomitant]
     Indication: DRUG USE FOR UNKNOWN INDICATION
  6. METOPROLOL TARTRATE [Concomitant]
     Indication: DRUG USE FOR UNKNOWN INDICATION
  7. FUROSEMIDE [Concomitant]
     Indication: DRUG USE FOR UNKNOWN INDICATION
  8. SITAGLIPTIN PHOSPHATE [Concomitant]
     Indication: DRUG USE FOR UNKNOWN INDICATION
  9. RANITIDINE [Concomitant]
     Indication: DRUG USE FOR UNKNOWN INDICATION
  10. TOPAMAX [Concomitant]
     Indication: DRUG USE FOR UNKNOWN INDICATION
  11. ASPIRIN [Concomitant]
     Indication: DRUG USE FOR UNKNOWN INDICATION
  12. CENTRUM SILVER [Concomitant]
     Indication: DRUG USE FOR UNKNOWN INDICATION

REACTIONS (9)
  - BREAST MASS [None]
  - ERYTHEMA [None]
  - FEELING ABNORMAL [None]
  - HOT FLUSH [None]
  - HYPERSENSITIVITY [None]
  - LOCAL SWELLING [None]
  - PAIN IN EXTREMITY [None]
  - PRURITUS [None]
  - RASH [None]
